FAERS Safety Report 5266132-3 (Version None)
Quarter: 2007Q1

REPORT INFORMATION
  Report Type: 
  Country: None (occurrence: None)
  Receive Date: 20070312
  Receipt Date: 20070227
  Transmission Date: 20070707
  Serious: Yes (Death, Life-Threatening, Other)
  Sender: FDA-Public Use
  Company Number: US019089

PATIENT
  Age: 57 Year
  Sex: Female

DRUGS (8)
  1. TRISENOX [Suspect]
     Indication: ACUTE PROMYELOCYTIC LEUKAEMIA
     Dosage: 7.95 QD INTRAVENOUS DRIP
     Route: 041
     Dates: start: 20061129, end: 20061213
  2. CYTARABINE [Suspect]
     Dosage: 140 MG QD INTRAVENOUS
     Route: 042
     Dates: start: 20061219, end: 20061223
  3. IDARUBICIN HCL [Suspect]
     Dosage: 17 MG QD INTRAVENOUS DRIP
     Route: 041
     Dates: start: 20061212, end: 20061214
  4. IDARUBICIN HCL [Suspect]
     Dosage: 17 MG QD INTRAVENOUS DRIP
     Route: 041
     Dates: start: 20061219, end: 20061220
  5. DANAPAROID SODIUM [Concomitant]
  6. CARBAZOCHROME SODIUM SULFONATE [Concomitant]
  7. TRANEXAMIC ACID [Concomitant]
  8. MONOAMMONIUM GLYCYRRHIZINATE/GLYCINE/L-CYSTEINE HYDROCHLORIDE [Concomitant]

REACTIONS (16)
  - ACUTE PROMYELOCYTIC LEUKAEMIA DIFFERENTIATION SYNDROME [None]
  - ALANINE AMINOTRANSFERASE INCREASED [None]
  - ASPARTATE AMINOTRANSFERASE INCREASED [None]
  - BLOOD ALKALINE PHOSPHATASE INCREASED [None]
  - BLOOD BILIRUBIN INCREASED [None]
  - BLOOD LACTATE DEHYDROGENASE INCREASED [None]
  - C-REACTIVE PROTEIN INCREASED [None]
  - CONDITION AGGRAVATED [None]
  - DISSEMINATED INTRAVASCULAR COAGULATION [None]
  - ELECTROCARDIOGRAM QT CORRECTED INTERVAL PROLONGED [None]
  - GASTROINTESTINAL HAEMORRHAGE [None]
  - HEPATIC FUNCTION ABNORMAL [None]
  - OEDEMA [None]
  - PNEUMONIA [None]
  - PULMONARY HAEMORRHAGE [None]
  - RESPIRATORY DISORDER [None]
